FAERS Safety Report 9137896 (Version 1)
Quarter: 2013Q1

REPORT INFORMATION
  Report Type: Report from Study
  Country: US (occurrence: US)
  Receive Date: 20130304
  Receipt Date: 20130304
  Transmission Date: 20140127
  Serious: No
  Sender: FDA-Public Use
  Company Number: US-ABBOTT-12P-163-0988663-00

PATIENT
  Age: 57 Year
  Sex: Male
  Weight: 93.52 kg

DRUGS (4)
  1. ANDROGEL [Suspect]
     Indication: BLOOD TESTOSTERONE DECREASED
     Dosage: ONE PUMP TOTAL DAILY
     Dates: start: 201205, end: 201209
  2. ARMOUR THYROID [Concomitant]
     Indication: THYROID DISORDER
  3. UNKNOWN MEDICATION [Concomitant]
     Indication: BLOOD CHOLESTEROL
  4. MULTIVITAMIN [Concomitant]
     Indication: SUPPLEMENTATION THERAPY

REACTIONS (1)
  - Pollakiuria [Recovering/Resolving]
